FAERS Safety Report 18684033 (Version 9)
Quarter: 2021Q3

REPORT INFORMATION
  Report Type: Spontaneous
  Country: US (occurrence: US)
  Receive Date: 20201230
  Receipt Date: 20210730
  Transmission Date: 20211014
  Serious: Yes (Other)
  Sender: FDA-Public Use
  Company Number: US-PFIZER INC-2020513362

PATIENT
  Age: 42 Year

DRUGS (3)
  1. SYNTHROID [Concomitant]
     Active Substance: LEVOTHYROXINE SODIUM
     Indication: IMMUNE SYSTEM DISORDER
     Dosage: 88 UG
  2. DEPO?ESTRADIOL [Suspect]
     Active Substance: ESTRADIOL CYPIONATE
     Dosage: UNK
  3. LIOTHYRONINE [Concomitant]
     Active Substance: LIOTHYRONINE
     Indication: IMMUNE SYSTEM DISORDER
     Dosage: 25 UG

REACTIONS (4)
  - Autoimmune thyroiditis [Unknown]
  - Malaise [Unknown]
  - Feeling abnormal [Unknown]
  - Granuloma annulare [Not Recovered/Not Resolved]

NARRATIVE: CASE EVENT DATE: 2001
